FAERS Safety Report 7262416-8 (Version None)
Quarter: 2011Q1

REPORT INFORMATION
  Report Type: 
  Country: None (occurrence: None)
  Receive Date: 20110130
  Receipt Date: 20101116
  Transmission Date: 20110831
  Serious: No
  Sender: FDA-Public Use
  Company Number: US-ABBOTT-10P-163-0686165-00

PATIENT
  Sex: Female

DRUGS (2)
  1. HUMIRA [Suspect]
     Indication: CROHN'S DISEASE
     Dates: start: 20080101, end: 20080101
  2. HUMIRA [Suspect]
     Dates: start: 20101001

REACTIONS (5)
  - INJECTION SITE ERYTHEMA [None]
  - FUNGAL INFECTION [None]
  - INJECTION SITE URTICARIA [None]
  - INJECTION SITE SWELLING [None]
  - RASH [None]
